FAERS Safety Report 11758702 (Version 1)
Quarter: 2015Q4

REPORT INFORMATION
  Report Type: Report from Study
  Country: CA (occurrence: CA)
  Receive Date: 20151120
  Receipt Date: 20151120
  Transmission Date: 20160304
  Serious: Yes (Other)
  Sender: FDA-Public Use
  Company Number: CA-GILEAD-2015-0173032

PATIENT
  Age: 49 Year
  Sex: Male

DRUGS (4)
  1. IDELALISIB [Suspect]
     Active Substance: IDELALISIB
     Indication: NON-HODGKIN^S LYMPHOMA UNSPECIFIED HISTOLOGY INDOLENT
     Dosage: 150 MG, BID
     Route: 048
     Dates: start: 20150825, end: 20151110
  2. FRAGMIN [Concomitant]
     Active Substance: DALTEPARIN SODIUM
  3. TYLENOL [Concomitant]
     Active Substance: ACETAMINOPHEN
  4. SYMBICORT [Concomitant]
     Active Substance: BUDESONIDE\FORMOTEROL FUMARATE DIHYDRATE

REACTIONS (8)
  - Hepatotoxicity [Unknown]
  - Vomiting [Unknown]
  - Diarrhoea [Unknown]
  - Hepatic congestion [Unknown]
  - Chills [Unknown]
  - Hepatic enzyme increased [Not Recovered/Not Resolved]
  - Pyrexia [Unknown]
  - Liver disorder [Unknown]
